FAERS Safety Report 14652630 (Version 2)
Quarter: 2018Q3

REPORT INFORMATION
  Report Type: Report from Study
  Country: None (occurrence: DE)
  Receive Date: 20180319
  Receipt Date: 20180802
  Transmission Date: 20181010
  Serious: Yes (Hospitalization)
  Sender: FDA-Public Use
  Company Number: DE-ABBVIE-18K-062-2288739-00

PATIENT
  Age: 77 Year
  Sex: Male

DRUGS (2)
  1. METHOTREXAT [Concomitant]
     Active Substance: METHOTREXATE
     Indication: PRODUCT USED FOR UNKNOWN INDICATION
  2. HUMIRA [Suspect]
     Active Substance: ADALIMUMAB
     Indication: RHEUMATOID ARTHRITIS
     Route: 058
     Dates: start: 201104

REACTIONS (1)
  - Hepatic cyst [Not Recovered/Not Resolved]

NARRATIVE: CASE EVENT DATE: 20171123
